FAERS Safety Report 13906777 (Version 1)
Quarter: 2017Q3

REPORT INFORMATION
  Report Type: Spontaneous
  Country: US (occurrence: US)
  Receive Date: 20170825
  Receipt Date: 20170825
  Transmission Date: 20171127
  Serious: Yes (Other)
  Sender: FDA-Public Use
  Company Number: US-VISTAPHARM, INC.-VER201707-000225

PATIENT
  Age: 60 Year
  Sex: Female
  Weight: 91 kg

DRUGS (14)
  1. ZOLOFT [Concomitant]
     Active Substance: SERTRALINE HYDROCHLORIDE
  2. OXYCODONE [Suspect]
     Active Substance: OXYCODONE
     Indication: BACK PAIN
     Dosage: 5 MG TABLET
  3. METHADONE [Suspect]
     Active Substance: METHADONE HYDROCHLORIDE
     Dates: end: 201309
  4. SIMVASTATIN. [Concomitant]
     Active Substance: SIMVASTATIN
     Indication: BLOOD CHOLESTEROL INCREASED
  5. LYRICA [Suspect]
     Active Substance: PREGABALIN
  6. LYRICA [Suspect]
     Active Substance: PREGABALIN
  7. FENTANYL 0.75 MCG PATCH [Concomitant]
  8. ASPIRIN. [Concomitant]
     Active Substance: ASPIRIN
  9. LYRICA [Suspect]
     Active Substance: PREGABALIN
  10. LYRICA [Suspect]
     Active Substance: PREGABALIN
  11. VALIUM [Concomitant]
     Active Substance: DIAZEPAM
     Indication: ANXIETY
  12. MIRTAZAPINE. [Concomitant]
     Active Substance: MIRTAZAPINE
     Indication: AFFECTIVE DISORDER
  13. LYRICA [Suspect]
     Active Substance: PREGABALIN
     Indication: NEURALGIA
     Dates: start: 201408
  14. MIRTAZAPINE. [Concomitant]
     Active Substance: MIRTAZAPINE
     Indication: SLEEP DISORDER

REACTIONS (8)
  - Night sweats [Recovered/Resolved]
  - Anxiety [Unknown]
  - Condition aggravated [Unknown]
  - Pain [Unknown]
  - Mood swings [Unknown]
  - Drug interaction [Not Recovered/Not Resolved]
  - Suicidal ideation [Unknown]
  - Burning sensation [Unknown]

NARRATIVE: CASE EVENT DATE: 201412
